FAERS Safety Report 19511002 (Version 1)
Quarter: 2021Q3

REPORT INFORMATION
  Report Type: Report from Study
  Country: None (occurrence: US)
  Receive Date: 20210709
  Receipt Date: 20210709
  Transmission Date: 20211014
  Serious: Yes (Disabling)
  Sender: FDA-Public Use
  Company Number: US-ABBVIE-21K-163-3982411-00

PATIENT
  Sex: Female

DRUGS (3)
  1. BENTYL [Concomitant]
     Active Substance: DICYCLOMINE HYDROCHLORIDE
     Indication: COLITIS ULCERATIVE
  2. HUMIRA [Suspect]
     Active Substance: ADALIMUMAB
     Indication: COLITIS ULCERATIVE
     Dosage: DAY 1
     Route: 058
     Dates: start: 20210630, end: 20210630
  3. PREDNISONE. [Concomitant]
     Active Substance: PREDNISONE
     Indication: COLITIS ULCERATIVE

REACTIONS (23)
  - Malaise [Unknown]
  - Frequent bowel movements [Unknown]
  - Abdominal distension [Unknown]
  - Loss of personal independence in daily activities [Unknown]
  - Injection site warmth [Unknown]
  - Injection site erythema [Unknown]
  - Muscle spasms [Unknown]
  - Diarrhoea [Unknown]
  - Nausea [Recovering/Resolving]
  - Fatigue [Unknown]
  - Haematochezia [Unknown]
  - Constipation [Unknown]
  - Asthenia [Unknown]
  - Chills [Unknown]
  - Abdominal pain [Unknown]
  - Insomnia [Unknown]
  - Decreased appetite [Unknown]
  - Disability [Unknown]
  - Feeling hot [Unknown]
  - Migraine [Unknown]
  - Flatulence [Unknown]
  - Hyperhidrosis [Unknown]
  - Insomnia [Unknown]

NARRATIVE: CASE EVENT DATE: 2021
